FAERS Safety Report 22301654 (Version 1)
Quarter: 2023Q2

REPORT INFORMATION
  Report Type: Spontaneous
  Country: MC (occurrence: MC)
  Receive Date: 20230510
  Receipt Date: 20230510
  Transmission Date: 20230722
  Serious: Yes (Other)
  Sender: FDA-Public Use
  Company Number: MC-JNJFOC-20230504219

PATIENT
  Age: 73 Year
  Sex: Male
  Weight: 76 kg

DRUGS (2)
  1. TECVAYLI [Suspect]
     Active Substance: TECLISTAMAB-CQYV
     Indication: Plasma cell myeloma
     Route: 065
  2. TECVAYLI [Suspect]
     Active Substance: TECLISTAMAB-CQYV
     Dosage: THE LAST TECLISTAMAB  INJECTION WAS ON 18-APR-2023.
     Route: 065
     Dates: end: 20230418

REACTIONS (2)
  - Klebsiella sepsis [Unknown]
  - Device related infection [Unknown]
